FAERS Safety Report 5512985-0 (Version None)
Quarter: 2007Q4

REPORT INFORMATION
  Report Type: 
  Country: None (occurrence: None)
  Receive Date: 20071112
  Receipt Date: 20071101
  Transmission Date: 20080405
  Serious: Yes (Hospitalization)
  Sender: FDA-Public Use
  Company Number: US-AMGEN-STX248688

PATIENT
  Sex: Female

DRUGS (5)
  1. ENBREL [Suspect]
     Indication: JUVENILE ARTHRITIS
     Route: 058
     Dates: start: 19991201, end: 20070401
  2. ENBREL [Suspect]
     Indication: RHEUMATOID ARTHRITIS
  3. NAPROXEN [Concomitant]
  4. ANEXSIA [Concomitant]
  5. DARVON [Concomitant]

REACTIONS (3)
  - ARTHRODESIS [None]
  - CELLULITIS [None]
  - POSTOPERATIVE WOUND INFECTION [None]
